FAERS Safety Report 24641559 (Version 1)
Quarter: 2024Q4

REPORT INFORMATION
  Report Type: Spontaneous
  Country: CZ (occurrence: CZ)
  Receive Date: 20241120
  Receipt Date: 20241120
  Transmission Date: 20250115
  Serious: Yes (Other)
  Sender: MYLAN
  Company Number: CZ-MYLANLABS-2023M1059009

PATIENT
  Age: 24 Year
  Sex: Male

DRUGS (7)
  1. OLANZAPINE [Suspect]
     Active Substance: OLANZAPINE
     Indication: Psychotic disorder
     Dosage: 20 MILLIGRAM, QD
     Route: 048
  2. OLANZAPINE [Suspect]
     Active Substance: OLANZAPINE
     Dosage: 25 MILLIGRAM, QD
     Route: 048
  3. OLANZAPINE [Suspect]
     Active Substance: OLANZAPINE
     Dosage: 15 MILLIGRAM,QD,(GRADUALLY REDUCED BY 5 MG)
     Route: 065
  4. OLANZAPINE [Suspect]
     Active Substance: OLANZAPINE
     Dosage: 5 MILLIGRAM
     Route: 065
  5. CARIPRAZINE [Suspect]
     Active Substance: CARIPRAZINE
     Indication: Psychotic disorder
     Dosage: 1.5 MILLIGRAM,QD
     Route: 065
  6. CARIPRAZINE [Suspect]
     Active Substance: CARIPRAZINE
     Dosage: 4.5 MILLIGRAM,QD(TITRATION LASTED 5 MONTHS)
     Route: 065
  7. RISPERIDONE [Suspect]
     Active Substance: RISPERIDONE
     Indication: Psychotic disorder
     Dosage: 1 MILLIGRAM,QD
     Route: 065

REACTIONS (8)
  - Hypoxia [Recovered/Resolved]
  - Affect lability [Recovered/Resolved]
  - Abulia [Recovered/Resolved]
  - Disturbance in attention [Recovered/Resolved]
  - Blunted affect [Recovered/Resolved]
  - Flat affect [Recovered/Resolved]
  - Weight increased [Recovered/Resolved]
  - Sedation [Recovered/Resolved]
